FAERS Safety Report 8847066 (Version 1)
Quarter: 2012Q4

REPORT INFORMATION
  Report Type: Spontaneous
  Country: CA (occurrence: None)
  Receive Date: 20121016
  Receipt Date: 20121016
  Transmission Date: 20130627
  Serious: Yes (Other)
  Sender: FDA-Public Use
  Company Number: 1449099

PATIENT
  Sex: Female

DRUGS (3)
  1. METHOTREXATE [Suspect]
     Indication: IMMUNOSUPPRESSION
  2. HUMIRA [Suspect]
     Indication: DIFFUSE SYSTEMIC SCLEROSIS
  3. HUMIRA [Suspect]
     Indication: INFLAMMATORY POLYARTHRITIS

REACTIONS (1)
  - Breast cancer [None]
